FAERS Safety Report 18402414 (Version 3)
Quarter: 2021Q1

REPORT INFORMATION
  Report Type: Spontaneous
  Country: JP (occurrence: JP)
  Receive Date: 20201019
  Receipt Date: 20210217
  Transmission Date: 20210419
  Serious: Yes (Life-Threatening, Hospitalization, Other)
  Sender: FDA-Public Use
  Company Number: JP-ELI_LILLY_AND_COMPANY-JP202009009960

PATIENT
  Age: 80 Year
  Sex: Female
  Weight: 38 kg

DRUGS (58)
  1. LANSOPRAZOLE. [Concomitant]
     Active Substance: LANSOPRAZOLE
     Dosage: 15 MG
     Route: 048
     Dates: end: 20200703
  2. TOARASET [Concomitant]
     Active Substance: ACETAMINOPHEN\TRAMADOL HYDROCHLORIDE
     Indication: SPINAL COMPRESSION FRACTURE
     Dosage: 1 DOSAGE FORM
     Route: 048
     Dates: end: 20200702
  3. REBAMIPIDE [Concomitant]
     Active Substance: REBAMIPIDE
     Dosage: 100 MG, TID
     Route: 048
     Dates: start: 20200707, end: 20200713
  4. LIXIANA [Concomitant]
     Active Substance: EDOXABAN TOSYLATE
     Indication: ATRIAL FIBRILLATION
     Dosage: 30 MG
     Route: 048
     Dates: end: 20200703
  5. LIXIANA [Concomitant]
     Active Substance: EDOXABAN TOSYLATE
     Dosage: 30 MG
     Route: 048
     Dates: start: 20200707
  6. AMLODIPINE [Concomitant]
     Active Substance: AMLODIPINE BESYLATE
     Dosage: 5 MG
     Route: 048
     Dates: start: 20200707
  7. BISONO [Concomitant]
     Active Substance: BISOPROLOL
     Dosage: 4 MG
     Route: 062
     Dates: start: 20200707, end: 20200708
  8. MECOBALAMIN [Concomitant]
     Active Substance: METHYLCOBALAMIN
     Indication: SPINAL COMPRESSION FRACTURE
     Dosage: 500 UG, TID
     Route: 048
     Dates: end: 20200703
  9. LIMAPROST ALFADEX [Concomitant]
     Active Substance: LIMAPROST
     Indication: PERIPHERAL ARTERIAL OCCLUSIVE DISEASE
     Dosage: 5 UG, TID
     Route: 048
     Dates: end: 20200702
  10. DULOXETINE HYDROCHLORIDE. [Suspect]
     Active Substance: DULOXETINE HYDROCHLORIDE
     Indication: BACK PAIN
     Dosage: 40 MG, DAILY
     Route: 048
     Dates: start: 20200626, end: 20200703
  11. LANSOPRAZOLE. [Concomitant]
     Active Substance: LANSOPRAZOLE
     Dosage: 15 MG
     Route: 048
     Dates: start: 20200707
  12. TARLIGE [Concomitant]
     Active Substance: MIROGABALIN BESYLATE
     Indication: SPINAL COMPRESSION FRACTURE
  13. TOARASET [Concomitant]
     Active Substance: ACETAMINOPHEN\TRAMADOL HYDROCHLORIDE
     Indication: BACK PAIN
  14. DISOPAIN [Concomitant]
     Active Substance: MOFEZOLAC
     Indication: BACK PAIN
  15. REBAMIPIDE [Concomitant]
     Active Substance: REBAMIPIDE
     Dosage: 100 MG, TID
     Route: 048
     Dates: end: 20200703
  16. THYRADIN S [Concomitant]
     Active Substance: LEVOTHYROXINE SODIUM
     Dosage: 75 UG
     Route: 048
     Dates: start: 20200707
  17. TRIMEBUTINE MALEATE [Concomitant]
     Active Substance: TRIMEBUTINE MALEATE
     Dosage: 100 MG, TID
     Route: 048
     Dates: end: 20200703
  18. BISONO [Concomitant]
     Active Substance: BISOPROLOL
     Indication: ATRIAL FIBRILLATION
     Dosage: 4 MG
     Route: 062
     Dates: end: 20200703
  19. DOMPERIDONE [Concomitant]
     Active Substance: DOMPERIDONE
     Dosage: 10 MG, PRN
     Route: 048
     Dates: end: 20200703
  20. ALPROSTADIL. [Concomitant]
     Active Substance: ALPROSTADIL
     Indication: PERIPHERAL ARTERIAL OCCLUSIVE DISEASE
     Route: 042
  21. MIZORIBINE [Concomitant]
     Active Substance: MIZORIBINE
     Dosage: 25 MG, BID
     Route: 048
     Dates: start: 20200707
  22. PREDONINE [Concomitant]
     Active Substance: PREDNISOLONE
     Dosage: 5 MG
     Route: 048
     Dates: start: 20200707
  23. NORITREN [Concomitant]
     Active Substance: NORTRIPTYLINE HYDROCHLORIDE
     Indication: SPINAL COMPRESSION FRACTURE
     Dosage: 25 MG
     Route: 048
     Dates: end: 20200703
  24. CODEINE PHOSPHATE [Concomitant]
     Active Substance: CODEINE PHOSPHATE
     Indication: SPINAL COMPRESSION FRACTURE
     Dosage: 1.5 G
     Route: 048
     Dates: end: 20200703
  25. MAGNESIUM OXIDE. [Concomitant]
     Active Substance: MAGNESIUM OXIDE
     Indication: CONSTIPATION
     Dosage: 1 G, BID
     Route: 048
     Dates: end: 20200703
  26. AMITIZA [Concomitant]
     Active Substance: LUBIPROSTONE
     Indication: CONSTIPATION
     Dosage: 24 UG, BID
     Route: 048
     Dates: end: 20200703
  27. BISOPROLOL FUMARATE. [Concomitant]
     Active Substance: BISOPROLOL FUMARATE
     Indication: ATRIAL FIBRILLATION
     Dosage: 2.5 MG
     Route: 048
     Dates: end: 20200703
  28. BISOPROLOL FUMARATE. [Concomitant]
     Active Substance: BISOPROLOL FUMARATE
     Dosage: 2.5 MG
     Route: 048
     Dates: start: 20200707
  29. TELMISARTAN. [Concomitant]
     Active Substance: TELMISARTAN
     Indication: HYPERTENSION
     Dosage: 20 MG
     Route: 048
     Dates: end: 20200703
  30. TELMISARTAN. [Concomitant]
     Active Substance: TELMISARTAN
     Dosage: 20 MG
     Route: 048
     Dates: start: 20200707
  31. DULOXETINE HYDROCHLORIDE. [Suspect]
     Active Substance: DULOXETINE HYDROCHLORIDE
     Indication: SPINAL COMPRESSION FRACTURE
  32. AMITIZA [Concomitant]
     Active Substance: LUBIPROSTONE
     Dosage: 24 UG, BID
     Route: 048
     Dates: start: 20200707
  33. TRIAZOLAM. [Concomitant]
     Active Substance: TRIAZOLAM
     Dosage: 0.125 MG
     Route: 048
     Dates: start: 20200707
  34. SENNOSIDE [SENNOSIDE A+B CALCIUM] [Concomitant]
     Active Substance: SENNOSIDES A AND B
     Dosage: 12 MG, PRN
     Route: 048
     Dates: start: 20200707, end: 20200708
  35. MECOBALAMIN [Concomitant]
     Active Substance: METHYLCOBALAMIN
     Indication: BACK PAIN
     Dosage: 500 UG, TID
     Route: 048
     Dates: start: 20200707, end: 20200714
  36. CODEINE PHOSPHATE [Concomitant]
     Active Substance: CODEINE PHOSPHATE
     Indication: BACK PAIN
     Dosage: 1.5 G
     Route: 048
     Dates: start: 20200707
  37. LYRICA [Concomitant]
     Active Substance: PREGABALIN
     Indication: SPINAL COMPRESSION FRACTURE
     Dosage: 25 MG, BID
     Route: 048
     Dates: end: 20200702
  38. TRIMEBUTINE MALEATE [Concomitant]
     Active Substance: TRIMEBUTINE MALEATE
     Dosage: 100 MG, TID
     Route: 048
     Dates: start: 20200707, end: 20200714
  39. PROPAFENONE HYDROCHLORIDE. [Concomitant]
     Active Substance: PROPAFENONE HYDROCHLORIDE
     Indication: ATRIAL FIBRILLATION
     Dosage: 150 MG, BID
     Route: 048
     Dates: end: 20200703
  40. LAVIN [Concomitant]
     Dosage: 50 MG, TID
     Route: 048
     Dates: end: 20200702
  41. TARLIGE [Concomitant]
     Active Substance: MIROGABALIN BESYLATE
     Indication: BACK PAIN
     Dosage: 2.5 MG
     Route: 048
     Dates: end: 20200702
  42. LYRICA [Concomitant]
     Active Substance: PREGABALIN
     Indication: BACK PAIN
  43. TRIAZOLAM. [Concomitant]
     Active Substance: TRIAZOLAM
     Dosage: 0.125 MG
     Route: 048
     Dates: end: 20200703
  44. LIMETHASON [DEXAMETHASONE PALMITATE] [Concomitant]
     Indication: RHEUMATOID ARTHRITIS
     Route: 042
  45. ORENCIA [Concomitant]
     Active Substance: ABATACEPT
     Indication: RHEUMATOID ARTHRITIS
     Dosage: UNK
     Route: 058
     Dates: start: 20200626
  46. NAUZELIN [Concomitant]
     Active Substance: DOMPERIDONE
     Dosage: 10 MG, BID
     Route: 048
     Dates: end: 20200703
  47. MIZORIBINE [Concomitant]
     Active Substance: MIZORIBINE
     Indication: RHEUMATOID ARTHRITIS
     Dosage: 25 MG, BID
     Route: 048
     Dates: end: 20200703
  48. TOCOPHEROL [Concomitant]
     Active Substance: TOCOPHEROL
     Dosage: 200 MG, BID
     Route: 048
     Dates: end: 20200702
  49. AMLODIPINE [Concomitant]
     Active Substance: AMLODIPINE BESYLATE
     Indication: HYPERTENSION
     Dosage: 5 MG
     Route: 048
     Dates: end: 20200703
  50. SENNOSIDE [SENNOSIDE A+B CALCIUM] [Concomitant]
     Active Substance: SENNOSIDES A AND B
     Indication: CONSTIPATION
     Dosage: 12 MG, PRN
     Route: 048
     Dates: end: 20200703
  51. ELCATONIN [Concomitant]
     Active Substance: ELCATONIN
     Indication: OSTEOPOROSIS
     Route: 030
  52. PRALIA [Concomitant]
     Active Substance: DENOSUMAB
     Indication: OSTEOPOROSIS
     Route: 058
  53. RINLAXER [Concomitant]
     Active Substance: CHLORPHENESIN CARBAMATE
     Indication: SPINAL COMPRESSION FRACTURE
     Dosage: 125 MG, TID
     Route: 048
     Dates: end: 20200703
  54. DISOPAIN [Concomitant]
     Active Substance: MOFEZOLAC
     Indication: SPINAL COMPRESSION FRACTURE
     Dosage: 75 MG, TID
     Route: 048
     Dates: end: 20200702
  55. NORITREN [Concomitant]
     Active Substance: NORTRIPTYLINE HYDROCHLORIDE
     Indication: BACK PAIN
     Dosage: 25 MG
     Route: 048
     Dates: start: 20200707
  56. THYRADIN S [Concomitant]
     Active Substance: LEVOTHYROXINE SODIUM
     Indication: HYPOTHYROIDISM
     Dosage: 75 UG
     Route: 048
     Dates: end: 20200703
  57. PREDONINE [Concomitant]
     Active Substance: PREDNISOLONE
     Indication: RHEUMATOID ARTHRITIS
     Dosage: 5 MG
     Route: 048
     Dates: end: 20200703
  58. RINLAXER [Concomitant]
     Active Substance: CHLORPHENESIN CARBAMATE
     Indication: BACK PAIN
     Dosage: 125 MG, TID
     Route: 048
     Dates: start: 20200707, end: 20200711

REACTIONS (7)
  - Blood loss anaemia [Unknown]
  - Decreased appetite [Recovering/Resolving]
  - Cardiac failure acute [Unknown]
  - Off label use [Unknown]
  - Ileus [Unknown]
  - Malaise [Recovering/Resolving]
  - Inappropriate antidiuretic hormone secretion [Recovering/Resolving]

NARRATIVE: CASE EVENT DATE: 20200630
